FAERS Safety Report 5405056-5 (Version None)
Quarter: 2007Q3

REPORT INFORMATION
  Report Type: 
  Country: None (occurrence: None)
  Receive Date: 20070801
  Receipt Date: 20070716
  Transmission Date: 20080115
  Serious: No
  Sender: FDA-Public Use
  Company Number: 2007BI011667

PATIENT
  Age: 47 Year
  Sex: Female

DRUGS (1)
  1. NATALIZUMAB [Suspect]
     Indication: MULTIPLE SCLEROSIS
     Dosage: 300 MG;QM;IV
     Route: 042
     Dates: start: 20070101

REACTIONS (3)
  - INFUSION RELATED REACTION [None]
  - LABORATORY TEST INTERFERENCE [None]
  - PYREXIA [None]
